FAERS Safety Report 23260467 (Version 1)
Quarter: 2023Q4

REPORT INFORMATION
  Report Type: Spontaneous
  Country: US (occurrence: US)
  Receive Date: 20231205
  Receipt Date: 20231205
  Transmission Date: 20240110
  Serious: No
  Sender: FDA-Public Use
  Company Number: US-SA-SAC20231127000365

PATIENT
  Sex: Female
  Weight: 22.6 kg

DRUGS (6)
  1. DUPIXENT [Suspect]
     Active Substance: DUPILUMAB
     Indication: Dermatitis atopic
     Dosage: 300 MG, QM
     Route: 058
     Dates: start: 20200904
  2. CLARITIN [Concomitant]
     Active Substance: LORATADINE
  3. VITAMINS NOS [Concomitant]
     Active Substance: VITAMINS
     Dosage: QD
  4. CALCIUM+MAGNESIUM+ZINC+VITAMIN D [Concomitant]
  5. BENADRYL ALLERGY [Concomitant]
     Active Substance: DIPHENHYDRAMINE HYDROCHLORIDE
  6. ATROPINE SULFATE [Concomitant]
     Active Substance: ATROPINE SULFATE

REACTIONS (2)
  - Ear pain [Not Recovered/Not Resolved]
  - Pruritus [Unknown]
